FAERS Safety Report 8766919 (Version 2)
Quarter: 2012Q4

REPORT INFORMATION
  Report Type: 
  Country: FR (occurrence: FR)
  Receive Date: 20120904
  Receipt Date: 20120926
  Transmission Date: 20130627
  Serious: Yes (Other)
  Sender: FDA-Public Use
  Company Number: FR-PFIZER INC-2012211345

PATIENT
  Age: 49 Year
  Sex: Male
  Weight: 76 kg

DRUGS (5)
  1. VFEND [Suspect]
     Indication: BRONCHOPULMONARY ASPERGILLOSIS
     Dosage: 300 mg, 2x/day
     Dates: start: 201010, end: 201112
  2. VFEND [Suspect]
     Dosage: 300 mg, 2x/day
  3. REYATAZ [Concomitant]
     Indication: HIV INFECTION
     Dosage: 300 mg, 1x/day
     Dates: start: 2009
  4. NORVIR [Concomitant]
     Indication: HIV INFECTION
     Dosage: 1 DF, 1x/day
     Dates: start: 2009
  5. KIVEXA [Concomitant]
     Indication: HIV INFECTION
     Dosage: 1 DF, 1x/day
     Dates: start: 2009

REACTIONS (1)
  - Squamous cell carcinoma of lung [Unknown]
